FAERS Safety Report 10644025 (Version 1)
Quarter: 2014Q4

REPORT INFORMATION
  Report Type: Spontaneous
  Country: RU (occurrence: RU)
  Receive Date: 20141210
  Receipt Date: 20141210
  Transmission Date: 20150529
  Serious: Yes (Other)
  Sender: FDA-Public Use
  Company Number: RU-BAYER-2014-181169

PATIENT
  Sex: Female

DRUGS (1)
  1. YAZ PLUS [Suspect]
     Active Substance: DROSPIRENONE\ETHINYL ESTRADIOL
     Route: 048

REACTIONS (5)
  - Libido decreased [None]
  - Oedema [None]
  - Psychotic disorder [None]
  - Cellulitis [None]
  - Headache [None]
